FAERS Safety Report 5000208-0 (Version None)
Quarter: 2006Q2

REPORT INFORMATION
  Report Type: 
  Country: None (occurrence: None)
  Receive Date: 20060511
  Receipt Date: 20060427
  Transmission Date: 20061013
  Serious: Yes (Hospitalization)
  Sender: FDA-Public Use
  Company Number: US-AMGEN-STX177908

PATIENT
  Age: 39 Year
  Sex: Male

DRUGS (2)
  1. ENBREL [Suspect]
     Indication: PSORIATIC ARTHROPATHY
     Route: 058
     Dates: start: 20040901
  2. ALBUTEROL [Concomitant]
     Route: 055

REACTIONS (2)
  - MOOD SWINGS [None]
  - PALPITATIONS [None]
